FAERS Safety Report 5431131-5 (Version None)
Quarter: 2007Q3

REPORT INFORMATION
  Report Type: 
  Country: None (occurrence: None)
  Receive Date: 20070830
  Receipt Date: 20070227
  Transmission Date: 20080115
  Serious: No
  Sender: FDA-Public Use
  Company Number: A0641138A

PATIENT
  Age: 40 Year
  Sex: Female

DRUGS (1)
  1. WELLBUTRIN XL [Suspect]
     Indication: DEPRESSION
     Dosage: 150MG TWICE PER DAY
     Route: 048

REACTIONS (2)
  - DRUG INEFFECTIVE [None]
  - FATIGUE [None]
